FAERS Safety Report 15710941 (Version 1)
Quarter: 2018Q4

REPORT INFORMATION
  Report Type: Report from Study
  Country: US (occurrence: US)
  Receive Date: 20181211
  Receipt Date: 20181211
  Transmission Date: 20190205
  Serious: Yes (Other)
  Sender: FDA-Public Use
  Company Number: US-BAUSCH-BL-2018-034211

PATIENT
  Sex: Male
  Weight: 155 kg

DRUGS (2)
  1. SILIQ [Suspect]
     Active Substance: BRODALUMAB
     Route: 058
     Dates: start: 2018
  2. SILIQ [Suspect]
     Active Substance: BRODALUMAB
     Indication: PSORIATIC ARTHROPATHY
     Dosage: AT WEEKS 0, 1, AND 2
     Route: 058
     Dates: start: 2018, end: 2018

REACTIONS (3)
  - Alopecia [Recovering/Resolving]
  - Staphylococcal infection [Recovering/Resolving]
  - Ill-defined disorder [Recovering/Resolving]

NARRATIVE: CASE EVENT DATE: 2018
